FAERS Safety Report 11866168 (Version 1)
Quarter: 2015Q4

REPORT INFORMATION
  Report Type: Report from Study
  Country: US (occurrence: US)
  Receive Date: 20151223
  Receipt Date: 20151223
  Transmission Date: 20160305
  Serious: Yes (Other)
  Sender: FDA-Public Use
  Company Number: US-EXELIXIS-CABO-15005745

PATIENT
  Age: 64 Year
  Sex: Male

DRUGS (5)
  1. CELEXA [Concomitant]
     Active Substance: CITALOPRAM HYDROBROMIDE
  2. COMETRIQ [Suspect]
     Active Substance: CABOZANTINIB S-MALATE
     Indication: THYROID CANCER
     Dosage: 140 MG, QD
     Route: 048
     Dates: start: 20150918, end: 20151014
  3. CLONIDINE. [Concomitant]
     Active Substance: CLONIDINE
  4. SYNTHROID [Concomitant]
     Active Substance: LEVOTHYROXINE SODIUM
  5. COMETRIQ [Suspect]
     Active Substance: CABOZANTINIB S-MALATE
     Dosage: 80 MG, QD
     Route: 048
     Dates: start: 20151109, end: 20151201

REACTIONS (22)
  - Skin ulcer [Recovering/Resolving]
  - Malaise [Not Recovered/Not Resolved]
  - Weight decreased [Unknown]
  - Activities of daily living impaired [Not Recovered/Not Resolved]
  - Influenza like illness [Not Recovered/Not Resolved]
  - Testicular pain [Not Recovered/Not Resolved]
  - Impaired driving ability [Not Recovered/Not Resolved]
  - Decreased appetite [Not Recovered/Not Resolved]
  - Skin burning sensation [Unknown]
  - Motion sickness [Unknown]
  - Dizziness [Not Recovered/Not Resolved]
  - Nasal dryness [Not Recovered/Not Resolved]
  - Glossodynia [Unknown]
  - Facial pain [Unknown]
  - Nausea [Not Recovered/Not Resolved]
  - Dyspepsia [Unknown]
  - Platelet count decreased [Recovered/Resolved]
  - Lacrimation increased [Recovered/Resolved]
  - Pain in extremity [Unknown]
  - Dysgeusia [Not Recovered/Not Resolved]
  - Epistaxis [Unknown]
  - Arthralgia [Not Recovered/Not Resolved]

NARRATIVE: CASE EVENT DATE: 20151021
